FAERS Safety Report 6743243-4 (Version None)
Quarter: 2010Q2

REPORT INFORMATION
  Report Type: 
  Country: None (occurrence: None)
  Receive Date: 20100527
  Receipt Date: 20100527
  Transmission Date: 20101027
  Serious: Yes (Hospitalization)
  Sender: FDA-Public Use
  Company Number: None

PATIENT
  Age: 5 Year
  Sex: Male
  Weight: 17.2367 kg

DRUGS (2)
  1. CHILDREN'S BENADRYL ALLERGY [Suspect]
     Indication: INSOMNIA
     Dosage: 1 TEASPOON ONCE A DAY PO
     Route: 048
     Dates: start: 20100330, end: 20100407
  2. CHILDREN'S BENADRYL ALLERGY [Suspect]
     Indication: NASAL CONGESTION
     Dosage: 1 TEASPOON ONCE A DAY PO
     Route: 048
     Dates: start: 20100330, end: 20100407

REACTIONS (6)
  - ABDOMINAL PAIN [None]
  - FOOD POISONING [None]
  - MIDDLE INSOMNIA [None]
  - PRODUCT QUALITY ISSUE [None]
  - THIRST [None]
  - VOMITING [None]
